FAERS Safety Report 7620125-7 (Version None)
Quarter: 2011Q3

REPORT INFORMATION
  Report Type: 
  Country: None (occurrence: None)
  Receive Date: 20110719
  Receipt Date: 20110710
  Transmission Date: 20111222
  Serious: Yes (Hospitalization)
  Sender: FDA-Public Use
  Company Number: PL-ASTRAZENECA-2010SE30460

PATIENT
  Age: 17827 Day
  Sex: Female

DRUGS (35)
  1. VANDETANIB [Suspect]
     Dosage: DAILY BLINDED THERAPY
     Route: 048
     Dates: start: 20090815, end: 20091201
  2. HYDROCHLOROTHIAZIDE [Concomitant]
     Indication: HYPOKALAEMIA
     Route: 048
     Dates: start: 20070517
  3. IBUPROM [Concomitant]
     Indication: HEADACHE
     Route: 048
     Dates: start: 20080702
  4. DICOFLOR 60 [Concomitant]
     Indication: DYSPEPSIA
     Route: 048
     Dates: start: 20091203
  5. KALIPOZ [Concomitant]
     Indication: HYPOKALAEMIA
     Route: 048
     Dates: start: 20071010
  6. TRAVOCORT [Concomitant]
     Indication: DERMATITIS ACNEIFORM
     Route: 061
     Dates: start: 20100504
  7. VANDETANIB [Suspect]
     Route: 048
     Dates: start: 20100505, end: 20110121
  8. ZOMETA [Concomitant]
     Indication: METASTASES TO BONE
     Route: 042
  9. XARTAN [Concomitant]
     Indication: HYPERTENSION
     Route: 048
     Dates: start: 20071127
  10. BEDICORT G [Concomitant]
     Indication: ERYTHEMA
  11. FURAGIN [Concomitant]
     Indication: URINARY TRACT INFECTION
     Route: 048
     Dates: start: 20090601
  12. KALIUM EFFERVESCENS [Concomitant]
     Indication: HYPOKALAEMIA
     Route: 048
     Dates: start: 20100519
  13. VANDETANIB [Suspect]
     Route: 048
     Dates: start: 20110523
  14. DOXAZOSIN MESYLATE [Concomitant]
     Indication: HYPOTHYROIDISM
     Route: 048
  15. LEVOTHYROXINE SODIUM [Concomitant]
     Indication: HYPOTHYROIDISM
     Route: 048
     Dates: start: 20091016
  16. GENTAMYCIN SULFATE [Concomitant]
     Indication: VULVOVAGINAL PRURITUS
     Dates: start: 20091110
  17. SANPROBI IBS [Concomitant]
     Indication: DYSPEPSIA
     Route: 048
     Dates: start: 20091203
  18. VANDETANIB [Suspect]
     Dosage: DAILY BLINDED THERAPY
     Route: 048
     Dates: start: 20091223, end: 20100504
  19. EUCERIN [Concomitant]
     Indication: SKIN LESION
     Route: 061
     Dates: start: 20080522
  20. ELOBAZA [Concomitant]
     Indication: SKIN LESION
     Route: 061
     Dates: start: 20080924
  21. ATECORTIN [Concomitant]
     Indication: CONJUNCTIVITIS
     Route: 047
     Dates: start: 20100527
  22. VANDETANIB [Suspect]
     Route: 048
     Dates: start: 20110208, end: 20110502
  23. FLEXIDERM [Concomitant]
     Indication: SKIN REACTION
     Route: 061
     Dates: start: 20080327
  24. IMODIUM [Concomitant]
     Indication: DIARRHOEA
     Route: 048
     Dates: start: 20080702
  25. LATICORT CH [Concomitant]
     Indication: VULVOVAGINAL PRURITUS
     Route: 061
     Dates: start: 20091110
  26. VANDETANIB [Suspect]
     Dosage: DAILY BLINDED THERAPY
     Route: 048
     Dates: start: 20090604, end: 20090731
  27. HYDROCHLOROTHIAZIDE [Concomitant]
     Indication: URINARY SEDIMENT PRESENT
     Route: 048
     Dates: start: 20070517
  28. KETONAL GEL [Concomitant]
     Indication: MUSCULOSKELETAL DISCOMFORT
     Route: 003
     Dates: start: 20080531
  29. VOLTAREN [Concomitant]
     Indication: BONE PAIN
     Route: 061
     Dates: start: 20090415
  30. VANDETANIB [Suspect]
     Indication: THYROID CANCER
     Dosage: DAILY BLINDED THERAPY
     Route: 048
     Dates: start: 20070214, end: 20090527
  31. CALPEROS [Concomitant]
     Indication: HYPOTHYROIDISM
     Route: 048
  32. KERATOSTILL [Concomitant]
     Indication: VISUAL ACUITY REDUCED
     Route: 061
     Dates: start: 20080415
  33. IBUPROM [Concomitant]
     Indication: PAIN
     Route: 048
     Dates: start: 20080702
  34. NO-SPA [Concomitant]
     Indication: ABDOMINAL DISCOMFORT
     Route: 048
     Dates: start: 20080702
  35. OMEPRAZOLE [Concomitant]
     Indication: ABDOMINAL DISCOMFORT
     Route: 048
     Dates: start: 20080410

REACTIONS (1)
  - PANCREATITIS CHRONIC [None]
